FAERS Safety Report 6606602-6 (Version None)
Quarter: 2010Q1

REPORT INFORMATION
  Report Type: 
  Country: None (occurrence: None)
  Receive Date: 20100226
  Receipt Date: 20100220
  Transmission Date: 20100710
  Serious: Yes (Other)
  Sender: FDA-Public Use
  Company Number: GB-GENENTECH-298510

PATIENT

DRUGS (1)
  1. ALTEPLASE [Suspect]
     Indication: FIBROSIS
     Route: 031

REACTIONS (1)
  - DEVICE MATERIAL OPACIFICATION [None]
